FAERS Safety Report 6335089-6 (Version None)
Quarter: 2009Q3

REPORT INFORMATION
  Report Type: 
  Country: None (occurrence: None)
  Receive Date: 20090831
  Receipt Date: 20051019
  Transmission Date: 20100115
  Serious: Yes (Hospitalization)
  Sender: FDA-Public Use
  Company Number: DEWYE069119OCT05

PATIENT
  Sex: Female
  Weight: 48 kg

DRUGS (8)
  1. RAPAMUNE [Suspect]
     Indication: PROPHYLAXIS AGAINST TRANSPLANT REJECTION
     Route: 048
     Dates: start: 20020701, end: 20030301
  2. DILATREND [Concomitant]
  3. REKAWAN [Concomitant]
  4. NEPHROTRANS [Concomitant]
  5. CALCIUM ACETATE [Concomitant]
  6. BONDIOL [Concomitant]
  7. DECORTIN-H [Concomitant]
     Indication: PROPHYLAXIS AGAINST TRANSPLANT REJECTION
     Route: 048
     Dates: start: 19890412
  8. LASIX [Concomitant]

REACTIONS (3)
  - ARTHRALGIA [None]
  - BONE PAIN [None]
  - LOW TURNOVER OSTEOPATHY [None]
